FAERS Safety Report 8646033 (Version 5)
Quarter: 2013Q3

REPORT INFORMATION
  Report Type: Spontaneous
  Country: US (occurrence: US)
  Receive Date: 20120702
  Receipt Date: 20130807
  Transmission Date: 20140515
  Serious: Yes (Hospitalization, Disabling, Other)
  Sender: FDA-Public Use
  Company Number: US-009507513-1206USA04945

PATIENT
  Sex: Female

DRUGS (1)
  1. FOSAMAX [Suspect]
     Indication: OSTEOPOROSIS
     Dosage: 70 MG, UNK
     Route: 048
     Dates: end: 20100318

REACTIONS (60)
  - Femur fracture [Unknown]
  - Intramedullary rod insertion [Unknown]
  - Low turnover osteopathy [Not Recovered/Not Resolved]
  - Osteoporosis [Not Recovered/Not Resolved]
  - Stress fracture [Not Recovered/Not Resolved]
  - Femur fracture [Unknown]
  - Femur fracture [Not Recovered/Not Resolved]
  - Femur fracture [Unknown]
  - Open reduction of fracture [Unknown]
  - Medical device removal [Recovered/Resolved]
  - Toe operation [Unknown]
  - Coronary artery bypass [Unknown]
  - Rotator cuff repair [Unknown]
  - Limb operation [Unknown]
  - Limb operation [Unknown]
  - Impaired healing [Unknown]
  - Tonsillectomy [Unknown]
  - Rotator cuff repair [Unknown]
  - Cataract [Unknown]
  - Knee arthroplasty [Unknown]
  - Renal failure [Unknown]
  - Haemorrhage [Unknown]
  - Cholecystectomy [Unknown]
  - Appendicectomy [Unknown]
  - Surgery [Unknown]
  - Surgery [Unknown]
  - Diverticulum [Unknown]
  - Hysterectomy [Unknown]
  - Polyp [Unknown]
  - Depression [Unknown]
  - Radiculopathy [Unknown]
  - Hypertension [Unknown]
  - Rectal haemorrhage [Unknown]
  - Arthritis [Unknown]
  - Hypothyroidism [Unknown]
  - Coronary artery disease [Unknown]
  - Spinal deformity [Unknown]
  - Haemorrhoids [Unknown]
  - Bursitis [Unknown]
  - Limb injury [Recovering/Resolving]
  - Arthritis [Unknown]
  - Fall [Unknown]
  - Neuroma [Unknown]
  - Arthritis [Unknown]
  - Rotator cuff syndrome [Unknown]
  - Osteoarthritis [Unknown]
  - Gastroenteritis viral [Unknown]
  - Infection [Recovering/Resolving]
  - Influenza [Unknown]
  - Carpal tunnel syndrome [Unknown]
  - Cervical radiculopathy [Unknown]
  - Blood cholesterol increased [Unknown]
  - Hypertension [Unknown]
  - Endodontic procedure [Unknown]
  - Cataract [Unknown]
  - Vomiting [Unknown]
  - Nausea [Unknown]
  - Diarrhoea [Unknown]
  - Drug ineffective [Unknown]
  - Drug ineffective [Unknown]
